FAERS Safety Report 9305690 (Version 1)
Quarter: 2013Q2

REPORT INFORMATION
  Report Type: Spontaneous
  Country: FR (occurrence: FR)
  Receive Date: 20130523
  Receipt Date: 20130523
  Transmission Date: 20140414
  Serious: Yes (Disabling)
  Sender: FDA-Public Use
  Company Number: FR-ABBOTT-13P-056-1090126-00

PATIENT
  Age: 50 Year
  Sex: Female

DRUGS (2)
  1. HUMIRA [Suspect]
     Indication: IRIDOCYCLITIS
     Dates: start: 201301, end: 20130117
  2. METHOTREXATE [Concomitant]
     Indication: IRIDOCYCLITIS
     Dosage: 20 MG THEN 15 MG/WEEK
     Route: 048

REACTIONS (2)
  - Demyelination [Not Recovered/Not Resolved]
  - Dysaesthesia [Recovering/Resolving]
